FAERS Safety Report 12402055 (Version 2)
Quarter: 2016Q2

REPORT INFORMATION
  Report Type: Spontaneous
  Country: US (occurrence: US)
  Receive Date: 20160525
  Receipt Date: 20160527
  Transmission Date: 20160815
  Serious: No
  Sender: FDA-Public Use
  Company Number: US-SA-2015SA221979

PATIENT
  Age: 83 Year
  Sex: Male

DRUGS (4)
  1. INSULIN [Concomitant]
     Active Substance: INSULIN NOS
  2. LANTUS SOLOSTAR [Suspect]
     Active Substance: INSULIN GLARGINE
     Indication: TYPE 2 DIABETES MELLITUS
     Dosage: DOSE:20 UNIT(S)
     Route: 065
     Dates: start: 2005
  3. NOVOPEN [Concomitant]
     Active Substance: INSULIN HUMAN
     Dosage: FREQUENCY: 10 TO 20 MINUTES BEFORE EVENING MEALS DOSE:5 UNIT(S)
  4. SOLOSTAR [Concomitant]
     Active Substance: DEVICE
     Dates: start: 2005

REACTIONS (4)
  - Hypoglycaemia [Recovered/Resolved]
  - Weight decreased [Unknown]
  - Glycosylated haemoglobin increased [Unknown]
  - Weight increased [Unknown]

NARRATIVE: CASE EVENT DATE: 2013
